FAERS Safety Report 6596920-2 (Version None)
Quarter: 2010Q1

REPORT INFORMATION
  Report Type: 
  Country: None (occurrence: None)
  Receive Date: 20100223
  Receipt Date: 20100209
  Transmission Date: 20100710
  Serious: Yes (Hospitalization)
  Sender: FDA-Public Use
  Company Number: NL-MYLANLABS-2010S1002060

PATIENT
  Age: 58 Year
  Sex: Male

DRUGS (6)
  1. OMEPRAZOLE [Suspect]
     Indication: ABDOMINAL PAIN UPPER
     Dosage: 40 MG/DAY
  2. PANTOPRAZOLE [Suspect]
     Indication: ABDOMINAL PAIN UPPER
  3. LANSOPRAZOLE [Suspect]
     Indication: ABDOMINAL PAIN UPPER
  4. RANITIDINE [Concomitant]
     Indication: ABDOMINAL PAIN UPPER
  5. CAPTOPRIL [Concomitant]
  6. SIMVASTATIN [Concomitant]

REACTIONS (3)
  - HYPOCALCAEMIA [None]
  - HYPOKALAEMIA [None]
  - HYPOMAGNESAEMIA [None]
